FAERS Safety Report 19977689 (Version 1)
Quarter: 2021Q4

REPORT INFORMATION
  Report Type: Spontaneous
  Country: US (occurrence: US)
  Receive Date: 20211020
  Receipt Date: 20211020
  Transmission Date: 20220303
  Serious: Yes (Other)
  Sender: FDA-Public Use
  Company Number: 2021A780527

PATIENT
  Sex: Male

DRUGS (3)
  1. OLAPARIB [Suspect]
     Active Substance: OLAPARIB
     Indication: Prostate cancer
     Route: 048
     Dates: start: 20210211
  2. DOCETAXEL [Concomitant]
     Active Substance: DOCETAXEL
  3. ABI [Concomitant]

REACTIONS (2)
  - Prostatic specific antigen increased [Unknown]
  - Malignant neoplasm progression [Unknown]
